FAERS Safety Report 13935870 (Version 1)
Quarter: 2017Q3

REPORT INFORMATION
  Report Type: Spontaneous
  Country: US (occurrence: US)
  Receive Date: 20170903
  Receipt Date: 20170903
  Transmission Date: 20171127
  Serious: Yes (Other)
  Sender: FDA-Public Use
  Company Number: None

PATIENT
  Age: 21 Year
  Sex: Female
  Weight: 70.65 kg

DRUGS (3)
  1. CLINDAMYCIN. [Suspect]
     Active Substance: CLINDAMYCIN
     Indication: PHARYNGITIS STREPTOCOCCAL
     Dosage: ?          QUANTITY:30 CAPSULE(S);?
     Route: 048
     Dates: start: 20170725, end: 20170804
  2. VANCOMYCIN [Concomitant]
     Active Substance: VANCOMYCIN
  3. BACTRIM [Concomitant]
     Active Substance: SULFAMETHOXAZOLE\TRIMETHOPRIM

REACTIONS (7)
  - Nausea [None]
  - Pyrexia [None]
  - Gastrointestinal disorder [None]
  - Diarrhoea [None]
  - Mucous stools [None]
  - Abdominal distension [None]
  - Clostridium test positive [None]

NARRATIVE: CASE EVENT DATE: 20170818
